FAERS Safety Report 4631877-2 (Version None)
Quarter: 2005Q1

REPORT INFORMATION
  Report Type: 
  Country: None (occurrence: None)
  Receive Date: 20050330
  Receipt Date: 20040915
  Transmission Date: 20050727
  Serious: Yes (Hospitalization)
  Sender: FDA-Public Use
  Company Number: 04P-163-0273353-00

PATIENT
  Age: 15 Year
  Sex: Male
  Weight: 72.5755 kg

DRUGS (2)
  1. DEPAKENE [Suspect]
     Indication: ABNORMAL BEHAVIOUR
     Dosage: 250 MG, 2 IN 1 D, ORAL
     Route: 048
     Dates: start: 20010101, end: 20040901
  2. METHYLPHENIDATE HCL [Concomitant]

REACTIONS (1)
  - PANCREATITIS [None]
